FAERS Safety Report 15940462 (Version 3)
Quarter: 2019Q4

REPORT INFORMATION
  Report Type: Spontaneous
  Country: US (occurrence: US)
  Receive Date: 20190208
  Receipt Date: 20191119
  Transmission Date: 20200122
  Serious: Yes (Other)
  Sender: FDA-Public Use
  Company Number: US-ASTRAZENECA-2018SF14539

PATIENT
  Age: 53 Year
  Sex: Female

DRUGS (13)
  1. METHOTREXATE. [Concomitant]
     Active Substance: METHOTREXATE
  2. NEXIUM [Suspect]
     Active Substance: ESOMEPRAZOLE MAGNESIUM
     Route: 048
     Dates: start: 2004, end: 2016
  3. PROTONIX [Suspect]
     Active Substance: PANTOPRAZOLE SODIUM
     Route: 065
     Dates: start: 2004, end: 2016
  4. DEXILANT [Suspect]
     Active Substance: DEXLANSOPRAZOLE
     Indication: GASTROOESOPHAGEAL REFLUX DISEASE
     Route: 065
     Dates: start: 2004, end: 2016
  5. FLEXERIL [Concomitant]
     Active Substance: CYCLOBENZAPRINE HYDROCHLORIDE
  6. MELOXICAM. [Concomitant]
     Active Substance: MELOXICAM
  7. CARDIZEM [Concomitant]
     Active Substance: DILTIAZEM HYDROCHLORIDE
  8. PLAQUENIL [Concomitant]
     Active Substance: HYDROXYCHLOROQUINE SULFATE
  9. NEXIUM 24HR [Suspect]
     Active Substance: ESOMEPRAZOLE MAGNESIUM
     Route: 048
     Dates: start: 2004, end: 2016
  10. PREVACID [Suspect]
     Active Substance: LANSOPRAZOLE
     Route: 065
     Dates: start: 2004, end: 2016
  11. PREVACID 24 HR [Suspect]
     Active Substance: LANSOPRAZOLE
     Route: 065
  12. PRILOSEC [Suspect]
     Active Substance: OMEPRAZOLE MAGNESIUM
     Route: 048
     Dates: start: 2004, end: 2016
  13. PRILOSEC OTC [Suspect]
     Active Substance: OMEPRAZOLE MAGNESIUM
     Route: 048
     Dates: start: 2004, end: 2016

REACTIONS (3)
  - Chronic kidney disease [Unknown]
  - End stage renal disease [Unknown]
  - Acute kidney injury [Unknown]
